FAERS Safety Report 10643541 (Version 1)
Quarter: 2014Q4

REPORT INFORMATION
  Report Type: Spontaneous
  Country: US (occurrence: US)
  Receive Date: 20141210
  Receipt Date: 20141210
  Transmission Date: 20150529
  Serious: Yes (Hospitalization, Other)
  Sender: FDA-Public Use
  Company Number: US-ABBVIE-14P-163-1316157-00

PATIENT
  Age: 55 Year
  Sex: Male

DRUGS (3)
  1. ANDROGEL [Suspect]
     Active Substance: TESTOSTERONE
     Indication: LIBIDO DECREASED
     Route: 061
  2. TESTOPEL [Suspect]
     Active Substance: TESTOSTERONE
     Indication: LIBIDO DECREASED
     Route: 065
  3. TESTIM [Suspect]
     Active Substance: TESTOSTERONE
     Indication: LIBIDO DECREASED
     Route: 065

REACTIONS (14)
  - Blood pressure inadequately controlled [Unknown]
  - Troponin increased [Unknown]
  - Nausea [Unknown]
  - Emotional distress [Unknown]
  - Asthenia [Unknown]
  - Chest pain [Unknown]
  - Acute myocardial infarction [Unknown]
  - Coronary artery disease [Unknown]
  - Loss of employment [Unknown]
  - Vomiting [Unknown]
  - Hypoaesthesia [Unknown]
  - Chest pain [Unknown]
  - Coronary artery disease [Unknown]
  - Impaired work ability [Unknown]

NARRATIVE: CASE EVENT DATE: 2014
